FAERS Safety Report 6889872-9 (Version None)
Quarter: 2010Q3

REPORT INFORMATION
  Report Type: 
  Country: None (occurrence: None)
  Receive Date: 20100730
  Receipt Date: 20080517
  Transmission Date: 20110219
  Serious: No
  Sender: FDA-Public Use
  Company Number: US-PFIZER INC-2008042752

PATIENT
  Sex: Male
  Weight: 83.91 kg

DRUGS (6)
  1. LIPITOR [Suspect]
     Dates: start: 20050701
  2. TOPROL-XL [Concomitant]
  3. ACETYLSALICYLIC ACID SRT [Concomitant]
  4. SYNTHROID [Concomitant]
  5. PRILOSEC [Concomitant]
  6. XANAX [Concomitant]

REACTIONS (2)
  - ABASIA [None]
  - MYALGIA [None]
